FAERS Safety Report 7828802-X (Version None)
Quarter: 2011Q4

REPORT INFORMATION
  Report Type: 
  Country: None (occurrence: None)
  Receive Date: 20111020
  Receipt Date: 20111012
  Transmission Date: 20120403
  Serious: Yes (Hospitalization, Other)
  Sender: FDA-Public Use
  Company Number: JP-CEPHALON-2011001231

PATIENT
  Sex: Male
  Weight: 70 kg

DRUGS (5)
  1. BENDAMUSTINE HCL [Suspect]
     Route: 042
     Dates: start: 20110223, end: 20110224
  2. BENDAMUSTINE HCL [Suspect]
     Indication: B-CELL LYMPHOMA
     Route: 042
     Dates: start: 20110202, end: 20110203
  3. ALLOPURINOL [Concomitant]
     Dates: end: 20110223
  4. BENIDIPINE [Concomitant]
  5. TOCOPHEROL CONCENTRATE CAP [Concomitant]

REACTIONS (10)
  - RASH [None]
  - LEUKOPENIA [None]
  - LYMPHOCYTE COUNT DECREASED [None]
  - BLOOD UREA INCREASED [None]
  - B-CELL LYMPHOMA [None]
  - THROMBOCYTOPENIA [None]
  - ANAEMIA [None]
  - FEBRILE NEUTROPENIA [None]
  - BLOOD SODIUM DECREASED [None]
  - NEOPLASM PROGRESSION [None]
